FAERS Safety Report 12294060 (Version 3)
Quarter: 2016Q2

REPORT INFORMATION
  Report Type: Spontaneous
  Country: AU (occurrence: AU)
  Receive Date: 20160422
  Receipt Date: 20160525
  Transmission Date: 20160815
  Serious: Yes (Death, Life-Threatening, Hospitalization, Other)
  Sender: FDA-Public Use
  Company Number: AU-ACTELION-A-CH2016-134525

PATIENT
  Age: 20 Year
  Sex: Female
  Weight: 40 kg

DRUGS (7)
  1. VELETRI [Suspect]
     Active Substance: EPOPROSTENOL
     Indication: PULMONARY ARTERIAL HYPERTENSION
     Dosage: UNK
     Route: 042
     Dates: start: 2015, end: 20160413
  2. FUROSEMIDE. [Concomitant]
     Active Substance: FUROSEMIDE
  3. RIVAROXABAN [Suspect]
     Active Substance: RIVAROXABAN
     Indication: DEEP VEIN THROMBOSIS
     Dosage: UNK
     Route: 048
     Dates: start: 20160407, end: 20160410
  4. FERROUS FUMARATE [Concomitant]
     Active Substance: FERROUS FUMARATE
  5. PANTOPRAZOLE [Concomitant]
     Active Substance: PANTOPRAZOLE SODIUM
  6. OPSUMIT [Suspect]
     Active Substance: MACITENTAN
     Indication: PULMONARY ARTERIAL HYPERTENSION
     Dosage: 10 MG, QD
     Route: 048
     Dates: start: 2016, end: 20160413
  7. SILDENAFIL. [Suspect]
     Active Substance: SILDENAFIL
     Indication: PULMONARY ARTERIAL HYPERTENSION
     Dosage: 25 MG, BID
     Route: 048
     Dates: start: 2013, end: 20160410

REACTIONS (18)
  - Right ventricular failure [Fatal]
  - Blood culture positive [Recovered/Resolved]
  - Staphylococcus test positive [Recovered/Resolved]
  - Endotracheal intubation [Unknown]
  - Pseudomonas infection [Recovered/Resolved]
  - Deep vein thrombosis [Unknown]
  - White blood cell count increased [Recovered/Resolved]
  - Device dislocation [Recovered/Resolved]
  - Medical device change [Unknown]
  - Blood culture positive [Unknown]
  - C-reactive protein increased [Unknown]
  - Haemoptysis [Recovered/Resolved with Sequelae]
  - Device related sepsis [Unknown]
  - Bronchoscopy [Unknown]
  - Catheter site infection [Recovered/Resolved]
  - Corynebacterium test positive [Unknown]
  - Traumatic lung injury [Unknown]
  - Malaise [Unknown]

NARRATIVE: CASE EVENT DATE: 20151113
